FAERS Safety Report 7189311-7 (Version None)
Quarter: 2010Q4

REPORT INFORMATION
  Report Type: 
  Country: None (occurrence: None)
  Receive Date: 20101222
  Receipt Date: 20100810
  Transmission Date: 20110411
  Serious: No
  Sender: FDA-Public Use
  Company Number: US-AMGEN-KDL427164

PATIENT

DRUGS (6)
  1. ENBREL [Suspect]
     Indication: RHEUMATOID ARTHRITIS
     Dosage: 50 MG, QWK
     Route: 058
     Dates: start: 20100618
  2. PREDNISONE [Concomitant]
     Dosage: UNK UNK, UNK
     Dates: start: 20100506
  3. CITALOPRAM HYDROBROMIDE [Concomitant]
     Dosage: UNK UNK, UNK
     Dates: start: 20081121
  4. LISINOPRIL [Concomitant]
     Dosage: 5 MG, UNK
     Dates: start: 20090812
  5. METFORMIN [Concomitant]
     Dosage: 500 MG, UNK
     Dates: start: 20100513
  6. SILDENAFIL [Concomitant]
     Dosage: UNK UNK, UNK
     Dates: start: 20100317

REACTIONS (4)
  - ASTHENOPIA [None]
  - DIZZINESS [None]
  - DRUG INEFFECTIVE [None]
  - HEADACHE [None]
